FAERS Safety Report 25153163 (Version 1)
Quarter: 2025Q2

REPORT INFORMATION
  Report Type: Spontaneous
  Country: US (occurrence: US)
  Receive Date: 20250403
  Receipt Date: 20250403
  Transmission Date: 20250716
  Serious: No
  Sender: TEVA
  Company Number: US-TEVA-VS-3312036

PATIENT
  Age: 78 Year
  Sex: Female

DRUGS (1)
  1. AUSTEDO [Suspect]
     Active Substance: DEUTETRABENAZINE
     Indication: Huntington^s disease
     Dosage: DOSE OF AUSTEDO IS 18 MG (MADE FROM AUSTEDO 12 MG AND AUESTEDO 6 MG TABLETS) TWICE DAILY.
     Route: 065

REACTIONS (3)
  - Gait inability [Unknown]
  - Speech disorder [Unknown]
  - Product use issue [Unknown]
